FAERS Safety Report 6873686-X (Version None)
Quarter: 2010Q3

REPORT INFORMATION
  Report Type: 
  Country: None (occurrence: None)
  Receive Date: 20100723
  Receipt Date: 20090218
  Transmission Date: 20110219
  Serious: No
  Sender: FDA-Public Use
  Company Number: US-PFIZER INC-2009174386

PATIENT
  Sex: Female
  Weight: 58.967 kg

DRUGS (4)
  1. CHANTIX [Suspect]
     Indication: SMOKING CESSATION THERAPY
     Dosage: UNK
     Route: 048
     Dates: start: 20090128, end: 20090216
  2. CENTRUM [Concomitant]
     Dosage: UNK
  3. SUPER VITAMIN B COMPLEX [Concomitant]
     Dosage: UNK
  4. CAFFEINE [Concomitant]

REACTIONS (1)
  - BREAST MASS [None]
